FAERS Safety Report 5959345-6 (Version None)
Quarter: 2008Q4

REPORT INFORMATION
  Report Type: 
  Country: None (occurrence: None)
  Receive Date: 20081120
  Receipt Date: 20081020
  Transmission Date: 20090506
  Serious: No
  Sender: FDA-Public Use
  Company Number: US-BAYER-200832701NA

PATIENT
  Sex: Female

DRUGS (1)
  1. LEVITRA [Suspect]
     Indication: RAYNAUD'S PHENOMENON
     Dosage: TOTAL DAILY DOSE: 20 MG  UNIT DOSE: 20 MG
     Route: 048

REACTIONS (1)
  - NO ADVERSE EVENT [None]
